FAERS Safety Report 14680078 (Version 8)
Quarter: 2018Q3

REPORT INFORMATION
  Report Type: Report from Study
  Country: US (occurrence: US)
  Receive Date: 20180326
  Receipt Date: 20180718
  Transmission Date: 20181010
  Serious: Yes (Other)
  Sender: FDA-Public Use
  Company Number: US-GILEAD-2018-0321923

PATIENT
  Age: 69 Year
  Sex: Female

DRUGS (4)
  1. AMBRISENTAN [Suspect]
     Active Substance: AMBRISENTAN
     Dosage: 10 MG, QD
     Route: 065
     Dates: start: 20180215
  2. ADCIRCA [Suspect]
     Active Substance: TADALAFIL
     Dosage: 20 MG, QD
     Route: 065
     Dates: start: 20180216
  3. ADCIRCA [Suspect]
     Active Substance: TADALAFIL
     Indication: PULMONARY HYPERTENSION
     Dosage: UNK
     Route: 065
  4. AMBRISENTAN [Suspect]
     Active Substance: AMBRISENTAN
     Indication: PULMONARY HYPERTENSION
     Dosage: 5 MG, QD
     Route: 065
     Dates: start: 20180215

REACTIONS (18)
  - Yawning [Not Recovered/Not Resolved]
  - Dyspnoea [Not Recovered/Not Resolved]
  - Condition aggravated [Not Recovered/Not Resolved]
  - Insomnia [Not Recovered/Not Resolved]
  - Toothache [Not Recovered/Not Resolved]
  - Dyspnoea exertional [Not Recovered/Not Resolved]
  - Haemoglobin decreased [Not Recovered/Not Resolved]
  - Renal failure [Not Recovered/Not Resolved]
  - Drug ineffective [Unknown]
  - Chest discomfort [Not Recovered/Not Resolved]
  - Somnolence [Not Recovered/Not Resolved]
  - Nasal congestion [Unknown]
  - Hypertension [Not Recovered/Not Resolved]
  - Tooth infection [Not Recovered/Not Resolved]
  - Anaemia [Not Recovered/Not Resolved]
  - Haematocrit decreased [Not Recovered/Not Resolved]
  - Fatigue [Not Recovered/Not Resolved]
  - Vascular device user [Not Recovered/Not Resolved]
